FAERS Safety Report 16243587 (Version 11)
Quarter: 2025Q4

REPORT INFORMATION
  Report Type: Spontaneous
  Country: US (occurrence: US)
  Receive Date: 20190426
  Receipt Date: 20251117
  Transmission Date: 20260118
  Serious: No
  Sender: PFIZER
  Company Number: US-PFIZER INC-2019172614

PATIENT
  Age: 71 Year
  Sex: Female

DRUGS (2)
  1. DISOPYRAMIDE PHOSPHATE [Suspect]
     Active Substance: DISOPYRAMIDE PHOSPHATE
     Indication: Ventricular extrasystoles
     Dosage: 100 MG, 2X/DAY (1 AT NIGHT AND THEN I TAKE 1 IN THE MIDDLE OF THE NIGHT)
  2. DISOPYRAMIDE PHOSPHATE [Suspect]
     Active Substance: DISOPYRAMIDE PHOSPHATE
     Indication: Hypertrophic cardiomyopathy

REACTIONS (3)
  - Insomnia [Unknown]
  - Off label use [Unknown]
  - Therapeutic product effect incomplete [Unknown]
